FAERS Safety Report 4501883-7 (Version None)
Quarter: 2004Q4

REPORT INFORMATION
  Report Type: 
  Country: None (occurrence: None)
  Receive Date: 20041109
  Receipt Date: 20041027
  Transmission Date: 20050328
  Serious: Yes (Other)
  Sender: FDA-Public Use
  Company Number: 2004237935GB

PATIENT
  Age: 62 Year
  Sex: Male
  Weight: 80 kg

DRUGS (7)
  1. LINEZOLID (LINEZOLID) SOLUTION, STERILE [Suspect]
     Indication: STAPHYLOCOCCAL INFECTION
     Dosage: 600 MG, BID, IV
     Route: 042
  2. LINEZOLID (LINEZOLID)TABLET [Suspect]
     Indication: STAPHYLOCOCCAL INFECTION
     Dosage: 600 MG, BID, ORAL
  3. WARFARIN SODIUM [Concomitant]
  4. METFORMIN [Concomitant]
  5. NITRAZEPAM [Concomitant]
  6. SIMVASTATIN [Concomitant]
  7. INSULIN HUMULIN-N (INSULIN) [Concomitant]

REACTIONS (4)
  - MALAISE [None]
  - MOUTH ULCERATION [None]
  - PYREXIA [None]
  - RASH [None]
